FAERS Safety Report 7332209-1 (Version None)
Quarter: 2011Q1

REPORT INFORMATION
  Report Type: 
  Country: None (occurrence: None)
  Receive Date: 20110222
  Receipt Date: 20110204
  Transmission Date: 20110831
  Serious: Yes (Hospitalization)
  Sender: FDA-Public Use
  Company Number: AUR-APL-2011-00371

PATIENT
  Age: 36 Year
  Sex: Female

DRUGS (9)
  1. PROPRANOLOL [Concomitant]
  2. PARACETAMOL [Concomitant]
  3. DEXAMETHASONE [Concomitant]
  4. DICLOFENAC [Concomitant]
  5. TRAMADOL [Concomitant]
  6. DIAZEPAM [Concomitant]
  7. GABAPENTIN [Suspect]
  8. INDOMETHACIN [Suspect]
  9. SUMATRIPTAN PRN [Concomitant]

REACTIONS (13)
  - EXERTIONAL HEADACHE [None]
  - CONFUSIONAL STATE [None]
  - VISUAL IMPAIRMENT [None]
  - DYSPRAXIA [None]
  - CEREBRAL ISCHAEMIA [None]
  - ATAXIA [None]
  - VASCULITIS [None]
  - MYOCLONUS [None]
  - CEREBROVASCULAR DISORDER [None]
  - DEMYELINATION [None]
  - CEREBRAL VASOCONSTRICTION [None]
  - VERTIGO [None]
  - PERONEAL NERVE PALSY [None]
